FAERS Safety Report 4834068-5 (Version None)
Quarter: 2005Q4

REPORT INFORMATION
  Report Type: 
  Country: None (occurrence: None)
  Receive Date: 20051118
  Receipt Date: 20051118
  Transmission Date: 20060501
  Serious: Yes (Other)
  Sender: FDA-Public Use
  Company Number: None

PATIENT
  Age: 13 Year
  Sex: Male
  Weight: 45 kg

DRUGS (6)
  1. CISAPRIDE 7 MG QID [Suspect]
     Indication: GASTROINTESTINAL HYPOMOTILITY
     Dosage: 7 MG QID PO
     Route: 048
  2. CISAPRIDE 7 MG QID [Suspect]
     Indication: GASTROOESOPHAGEAL REFLUX DISEASE
     Dosage: 7 MG QID PO
     Route: 048
  3. CAMITINE [Concomitant]
  4. DIGOXIN [Concomitant]
  5. FLONASE [Concomitant]
  6. MULTIVITAMINS / VIT C [Concomitant]

REACTIONS (1)
  - ELECTROCARDIOGRAM QT CORRECTED INTERVAL PROLONGED [None]
